FAERS Safety Report 8850541 (Version 1)
Quarter: 2012Q4

REPORT INFORMATION
  Report Type: 
  Country: US (occurrence: US)
  Receive Date: 20121019
  Receipt Date: 20121019
  Transmission Date: 20130627
  Serious: Yes (Other)
  Sender: FDA-Public Use
  Company Number: CHPA2012US021461

PATIENT
  Sex: Female

DRUGS (1)
  1. TRANSDERM SCOP [Suspect]
     Dosage: 1 PATCH, Unk
     Route: 062
     Dates: start: 20120619, end: 20120621

REACTIONS (2)
  - Pupils unequal [Not Recovered/Not Resolved]
  - Mydriasis [Recovered/Resolved]
